FAERS Safety Report 23284507 (Version 1)
Quarter: 2023Q4

REPORT INFORMATION
  Report Type: Spontaneous
  Country: CA (occurrence: CA)
  Receive Date: 20231211
  Receipt Date: 20231211
  Transmission Date: 20240110
  Serious: Yes (Hospitalization)
  Sender: FDA-Public Use
  Company Number: CA-FreseniusKabi-FK202319738

PATIENT
  Age: 2 Year
  Sex: Male
  Weight: 12 kg

DRUGS (4)
  1. SODIUM CHLORIDE [Suspect]
     Active Substance: SODIUM CHLORIDE
     Indication: Dehydration
     Dosage: FREQUENCY: ONCE?DOSAGE FORM: SOLUTION INTRAVENOUS
     Route: 040
  2. DEXTROSE\SODIUM CHLORIDE [Suspect]
     Active Substance: DEXTROSE\SODIUM CHLORIDE
     Indication: Dehydration
  3. HYDROCHLOROTHIAZIDE [Concomitant]
     Active Substance: HYDROCHLOROTHIAZIDE
     Indication: Product used for unknown indication
     Dosage: TABLET
  4. FERROUS SULFATE ANHYDROUS [Concomitant]
     Active Substance: FERROUS SULFATE ANHYDROUS
     Indication: Product used for unknown indication
     Dosage: DOSAGE FORM: NOT SPECIFIED

REACTIONS (1)
  - Hypernatraemia [Recovered/Resolved]
